FAERS Safety Report 4928499-2 (Version None)
Quarter: 2006Q1

REPORT INFORMATION
  Report Type: 
  Country: None (occurrence: None)
  Receive Date: 20060223
  Receipt Date: 20060208
  Transmission Date: 20060701
  Serious: Yes (Death, Hospitalization, Other)
  Sender: FDA-Public Use
  Company Number: 2006-00294

PATIENT
  Sex: 0

DRUGS (1)
  1. VELCADE [Suspect]
     Dosage: 1.30 MG/M2, 2/WEEK, INTRAVENOUS
     Route: 042

REACTIONS (5)
  - ANAEMIA [None]
  - HYPOGLYCAEMIA [None]
  - INFECTION [None]
  - THERAPY NON-RESPONDER [None]
  - THROMBOCYTOPENIA [None]
